FAERS Safety Report 8173062-6 (Version None)
Quarter: 2012Q1

REPORT INFORMATION
  Report Type: 
  Country: None (occurrence: None)
  Receive Date: 20120223
  Receipt Date: 20120209
  Transmission Date: 20120608
  Serious: Yes (Other)
  Sender: FDA-Public Use
  Company Number: AUR-APL-2012-01006

PATIENT
  Age: 47 Year
  Sex: Male

DRUGS (4)
  1. CEFAZOLIN [Suspect]
     Indication: STAPHYLOCOCCAL INFECTION
     Dosage: INTRAVENOUS
     Route: 042
  2. GABAPENTIN [Suspect]
     Indication: PRODUCT USED FOR UNKNOWN INDICATION
  3. BENZODIAZEPINE (BENZODIAZEPINE RELATED DRUGS) [Suspect]
     Indication: PRODUCT USED FOR UNKNOWN INDICATION
  4. OPIATES (OPIAT) [Suspect]
     Indication: PRODUCT USED FOR UNKNOWN INDICATION

REACTIONS (6)
  - PERITONEAL DIALYSIS [None]
  - LETHARGY [None]
  - DEPRESSED LEVEL OF CONSCIOUSNESS [None]
  - DRUG LEVEL ABOVE THERAPEUTIC [None]
  - STUPOR [None]
  - MYOCLONUS [None]
